FAERS Safety Report 21866202 (Version 1)
Quarter: 2023Q1

REPORT INFORMATION
  Report Type: Spontaneous
  Country: US (occurrence: US)
  Receive Date: 20230116
  Receipt Date: 20230116
  Transmission Date: 20230417
  Serious: Yes (Other)
  Sender: FDA-Public Use
  Company Number: US-UCBSA-2022058598

PATIENT
  Age: 36 Year
  Sex: Female
  Weight: 113.38 kg

DRUGS (4)
  1. CIMZIA [Suspect]
     Active Substance: CERTOLIZUMAB PEGOL
     Indication: Rheumatoid arthritis
     Dosage: 200 MILLIGRAM, EV 2 WEEKS(QOW)
     Route: 058
     Dates: start: 20220629
  2. CIMZIA [Suspect]
     Active Substance: CERTOLIZUMAB PEGOL
     Indication: Psoriatic arthropathy
  3. VITAMINS NOS [Concomitant]
     Active Substance: VITAMINS
     Indication: Product used for unknown indication
  4. VITAMIN D3 [Concomitant]
     Active Substance: CHOLECALCIFEROL
     Indication: Product used for unknown indication

REACTIONS (10)
  - Rheumatoid arthritis [Recovering/Resolving]
  - Psoriatic arthropathy [Recovering/Resolving]
  - Loss of personal independence in daily activities [Unknown]
  - Pain [Unknown]
  - Musculoskeletal stiffness [Unknown]
  - Asthenia [Unknown]
  - Fatigue [Unknown]
  - Malaise [Unknown]
  - Cough [Unknown]
  - Stress [Recovering/Resolving]

NARRATIVE: CASE EVENT DATE: 20230106
